FAERS Safety Report 4464787-4 (Version None)
Quarter: 2004Q4

REPORT INFORMATION
  Report Type: 
  Country: None (occurrence: None)
  Receive Date: 20041004
  Receipt Date: 20040831
  Transmission Date: 20050328
  Serious: No
  Sender: FDA-Public Use
  Company Number: MCN380081

PATIENT
  Age: 83 Year
  Sex: Male
  Weight: 55.5 kg

DRUGS (7)
  1. COREG [Suspect]
     Indication: CORONARY ARTERY DISEASE
     Dosage: 3.125MG TWICE PER DAY
     Route: 048
  2. LABETALOL [Suspect]
     Indication: DRUG USE FOR UNKNOWN INDICATION
     Dosage: 200MG PER DAY
     Route: 048
  3. HYDRALAZINE HCL [Concomitant]
     Dosage: 50MG TWICE PER DAY
     Route: 048
  4. LASIX [Concomitant]
     Route: 048
  5. KCL TAB [Concomitant]
     Dosage: 10MEQ PER DAY
     Route: 048
  6. FEOSOL [Concomitant]
     Route: 048
  7. LANOXIN [Concomitant]
     Dosage: .125MG PER DAY
     Route: 048

REACTIONS (1)
  - BRADYCARDIA [None]
